FAERS Safety Report 19705284 (Version 1)
Quarter: 2021Q3

REPORT INFORMATION
  Report Type: Spontaneous
  Country: NL (occurrence: NL)
  Receive Date: 20210816
  Receipt Date: 20210816
  Transmission Date: 20211014
  Serious: Yes (Other)
  Sender: FDA-Public Use
  Company Number: NL-MYLANLABS-2021M1049890

PATIENT
  Age: 45 Year
  Sex: Male
  Weight: 115 kg

DRUGS (1)
  1. QUETIAPINE. [Suspect]
     Active Substance: QUETIAPINE
     Indication: SLEEP DISORDER
     Dosage: 1 X 1 TABLET PER DAG
     Dates: start: 2018, end: 20180531

REACTIONS (3)
  - Visual impairment [Not Recovered/Not Resolved]
  - Off label use [Unknown]
  - Diabetes mellitus [Not Recovered/Not Resolved]

NARRATIVE: CASE EVENT DATE: 20200421
